FAERS Safety Report 4280574-4 (Version None)
Quarter: 2004Q1

REPORT INFORMATION
  Report Type: 
  Country: None (occurrence: None)
  Receive Date: 20040127
  Receipt Date: 20031111
  Transmission Date: 20041129
  Serious: Yes (Other)
  Sender: FDA-Public Use
  Company Number: 2003117572

PATIENT
  Age: 36 Year
  Sex: Male

DRUGS (1)
  1. COMBANTRIN (PYRANTEL) [Suspect]
     Indication: ENTEROBIASIS
     Dates: start: 20030101

REACTIONS (3)
  - GASTROINTESTINAL DISORDER [None]
  - HYPERSENSITIVITY [None]
  - OROPHARYNGEAL SWELLING [None]
